FAERS Safety Report 6373733-8 (Version None)
Quarter: 2009Q3

REPORT INFORMATION
  Report Type: 
  Country: None (occurrence: None)
  Receive Date: 20090924
  Receipt Date: 20090430
  Transmission Date: 20100115
  Serious: Yes (Other)
  Sender: FDA-Public Use
  Company Number: US-ASTRAZENECA-2009UW10908

PATIENT
  Age: 30 Year
  Sex: Male

DRUGS (2)
  1. SEROQUEL XR [Suspect]
     Dosage: 150 MG
     Route: 048
  2. BETABLOCKER [Concomitant]

REACTIONS (1)
  - ORTHOSTATIC HYPOTENSION [None]
